FAERS Safety Report 13729278 (Version 1)
Quarter: 2017Q3

REPORT INFORMATION
  Report Type: Spontaneous
  Country: US (occurrence: US)
  Receive Date: 20170707
  Receipt Date: 20170707
  Transmission Date: 20171127
  Serious: No
  Sender: FDA-Public Use
  Company Number: US-TEVA-784104USA

PATIENT
  Sex: Male
  Weight: 122.58 kg

DRUGS (4)
  1. FENTORA [Suspect]
     Active Substance: FENTANYL CITRATE
     Indication: NECK PAIN
  2. ACTIQ [Suspect]
     Active Substance: FENTANYL CITRATE
     Indication: BACK PAIN
     Route: 065
     Dates: start: 2004
  3. ACTIQ [Suspect]
     Active Substance: FENTANYL CITRATE
     Indication: NECK PAIN
  4. FENTORA [Suspect]
     Active Substance: FENTANYL CITRATE
     Indication: BACK PAIN
     Route: 002
     Dates: start: 20170627

REACTIONS (9)
  - Dyspepsia [Recovered/Resolved]
  - Weight increased [Not Recovered/Not Resolved]
  - Mobility decreased [Not Recovered/Not Resolved]
  - Toothache [Unknown]
  - Dental caries [Unknown]
  - Tooth loss [Not Recovered/Not Resolved]
  - Surgery [Unknown]
  - Product use in unapproved indication [Unknown]
  - Pain [Not Recovered/Not Resolved]

NARRATIVE: CASE EVENT DATE: 2004
